FAERS Safety Report 25729387 (Version 2)
Quarter: 2025Q3

REPORT INFORMATION
  Report Type: Spontaneous
  Country: CA (occurrence: CA)
  Receive Date: 20250827
  Receipt Date: 20250828
  Transmission Date: 20251021
  Serious: Yes (Death, Hospitalization, Other)
  Sender: AMGEN
  Company Number: CA-AMGEN-CANSP2025165123

PATIENT

DRUGS (2)
  1. FILGRASTIM [Suspect]
     Active Substance: FILGRASTIM
     Indication: Prophylaxis
     Route: 065
  2. PEGFILGRASTIM [Suspect]
     Active Substance: PEGFILGRASTIM
     Indication: Prophylaxis
     Route: 065

REACTIONS (6)
  - General physical health deterioration [Fatal]
  - Febrile neutropenia [Unknown]
  - Neutropenia [Unknown]
  - Unevaluable event [Unknown]
  - Bone pain [Unknown]
  - Adverse event [Unknown]
